FAERS Safety Report 22057445 (Version 2)
Quarter: 2023Q1

REPORT INFORMATION
  Report Type: Other
  Country: US (occurrence: None)
  Receive Date: 20230303
  Receipt Date: 20230310
  Transmission Date: 20230417
  Serious: Yes (Death)
  Sender: FDA-Public Use
  Company Number: US-ROCHE-3297715

PATIENT
  Age: 75 Year
  Sex: Female

DRUGS (1)
  1. ESBRIET [Suspect]
     Active Substance: PIRFENIDONE
     Indication: Idiopathic pulmonary fibrosis
     Dosage: TAKE 1 TABLET BY MOUTH IN THE MORNING AND TAKE 1 TABLET BY MOUTH AT NOON AND TAKE 1 TABLET BY MOUTH
     Route: 048
     Dates: start: 20211109

REACTIONS (1)
  - Death [Fatal]
